FAERS Safety Report 5197712-1 (Version None)
Quarter: 2006Q4

REPORT INFORMATION
  Report Type: 
  Country: None (occurrence: None)
  Receive Date: 20061228
  Receipt Date: 20061214
  Transmission Date: 20070319
  Serious: Yes (Other)
  Sender: FDA-Public Use
  Company Number: TCI2006A04246

PATIENT
  Age: 42 Year
  Sex: Male

DRUGS (6)
  1. ACTOS [Suspect]
     Indication: DIABETES MELLITUS NON-INSULIN-DEPENDENT
     Dosage: 30 MG (30 MG, 1 IN 1 D), PER ORAL
     Route: 048
     Dates: start: 20040724, end: 20050125
  2. AMARYL [Concomitant]
  3. GLUCOBAY [Concomitant]
  4. TICLOPIDINE HCL [Concomitant]
  5. LOCHOL (FLUVASTATIN SODIUM) [Concomitant]
  6. GASMOTIN (MOSAPRIDE CITRATE) [Concomitant]

REACTIONS (2)
  - GLYCOSYLATED HAEMOGLOBIN INCREASED [None]
  - MACULAR OEDEMA [None]
